FAERS Safety Report 21553116 (Version 1)
Quarter: 2022Q4

REPORT INFORMATION
  Report Type: Spontaneous
  Country: KR (occurrence: KR)
  Receive Date: 20221104
  Receipt Date: 20221104
  Transmission Date: 20230113
  Serious: Yes (Hospitalization)
  Sender: FDA-Public Use
  Company Number: KR-MYLANLABS-2022M1118902

PATIENT
  Age: 84 Year
  Sex: Male

DRUGS (3)
  1. LYRICA [Suspect]
     Active Substance: PREGABALIN
     Indication: Insomnia
     Dosage: 1 DOSAGE FORM, QD
     Route: 065
     Dates: start: 20190827, end: 20190926
  2. QUETIAPINE FUMARATE [Suspect]
     Active Substance: QUETIAPINE FUMARATE
     Indication: Insomnia
     Dosage: 0.5 DOSAGE FORM, QD
     Route: 065
     Dates: start: 20190806, end: 20190926
  3. ZOLPIDEM TARTRATE [Suspect]
     Active Substance: ZOLPIDEM TARTRATE
     Indication: Insomnia
     Dosage: 1 DOSAGE FORM, QD
     Route: 065
     Dates: start: 20190220, end: 20190926

REACTIONS (2)
  - Somnolence [Recovered/Resolved]
  - Off label use [Unknown]

NARRATIVE: CASE EVENT DATE: 20190827
